FAERS Safety Report 5627972-1 (Version None)
Quarter: 2008Q1

REPORT INFORMATION
  Report Type: 
  Country: None (occurrence: None)
  Receive Date: 20080215
  Receipt Date: 20080206
  Transmission Date: 20080703
  Serious: Yes (Hospitalization, Disabling, Other)
  Sender: FDA-Public Use
  Company Number: GB-BRISTOL-MYERS SQUIBB COMPANY-14075634

PATIENT
  Age: 66 Year
  Sex: Female

DRUGS (3)
  1. CYCLOPHOSPHAMIDE [Suspect]
     Route: 048
     Dates: start: 20070105, end: 20070520
  2. FLUDARABINE [Suspect]
     Route: 048
     Dates: start: 20070105, end: 20070520
  3. RITUXIMAB [Suspect]
     Route: 042
     Dates: start: 20070105, end: 20070520

REACTIONS (1)
  - VISUAL ACUITY REDUCED [None]
